FAERS Safety Report 16084804 (Version 1)
Quarter: 2019Q1

REPORT INFORMATION
  Report Type: Spontaneous
  Country: US (occurrence: US)
  Receive Date: 20190318
  Receipt Date: 20190318
  Transmission Date: 20190418
  Serious: No
  Sender: FDA-Public Use
  Company Number: US-AVADEL SPECIALTY PHARMACEUTICALS, LLC-2019AVA00008

PATIENT
  Age: 72 Year
  Sex: Female

DRUGS (7)
  1. ELIQUIS [Concomitant]
     Active Substance: APIXABAN
  2. SEROQUEL [Concomitant]
     Active Substance: QUETIAPINE FUMARATE
  3. NOCTIVA [Suspect]
     Active Substance: DESMOPRESSIN ACETATE
     Dosage: 0.83 ?G, 1X/DAY 30 MINUTES BEFORE BEDTIME
     Route: 045
     Dates: start: 20181219
  4. LOPRESSOR [Concomitant]
     Active Substance: METOPROLOL TARTRATE
  5. MYRBETRIQ [Concomitant]
     Active Substance: MIRABEGRON
  6. SIMVASTATIN. [Concomitant]
     Active Substance: SIMVASTATIN
  7. NEXIUM [Concomitant]
     Active Substance: ESOMEPRAZOLE MAGNESIUM

REACTIONS (1)
  - Drug ineffective [Unknown]

NARRATIVE: CASE EVENT DATE: 20181219
